FAERS Safety Report 5116384-5 (Version None)
Quarter: 2006Q3

REPORT INFORMATION
  Report Type: 
  Country: None (occurrence: None)
  Receive Date: 20060928
  Receipt Date: 20060919
  Transmission Date: 20061208
  Serious: Yes (Other)
  Sender: FDA-Public Use
  Company Number: US-BAYER-200613996BCC

PATIENT
  Age: 38 Year
  Sex: Male
  Weight: 100 kg

DRUGS (2)
  1. ASPIRIN [Suspect]
     Indication: HEADACHE
     Route: 048
  2. VALIUM [Concomitant]

REACTIONS (1)
  - GASTROINTESTINAL CARCINOMA [None]
